FAERS Safety Report 9431555 (Version 1)
Quarter: 2013Q3

REPORT INFORMATION
  Report Type: Spontaneous
  Country: KR (occurrence: KR)
  Receive Date: 20130731
  Receipt Date: 20130731
  Transmission Date: 20140515
  Serious: Yes (Life-Threatening)
  Sender: FDA-Public Use
  Company Number: PHHY2013KR078543

PATIENT
  Age: 38 Year
  Sex: Female

DRUGS (8)
  1. ROPIVACAINE [Suspect]
  2. LIDOCAINE [Suspect]
     Dosage: 1 %, UNK
  3. FENTANYL [Suspect]
  4. THIOPENTAL [Suspect]
     Route: 042
  5. EPINEPHRINE [Suspect]
  6. EPHEDRINE [Suspect]
     Dosage: 10 MG, UNK
  7. ATROPINE [Suspect]
  8. SUCCINYLCHOLINE CHLORIDE [Suspect]
     Indication: ENDOTRACHEAL INTUBATION

REACTIONS (8)
  - Respiratory depression [Unknown]
  - Muscle tightness [Unknown]
  - Somnolence [Unknown]
  - Mental disorder [Unknown]
  - Bradycardia [Unknown]
  - Hypotension [Unknown]
  - Drug administration error [Unknown]
  - Maternal exposure during pregnancy [Unknown]
